FAERS Safety Report 19707298 (Version 2)
Quarter: 2021Q3

REPORT INFORMATION
  Report Type: Spontaneous
  Country: IT (occurrence: IT)
  Receive Date: 20210817
  Receipt Date: 20210923
  Transmission Date: 20211014
  Serious: Yes (Other)
  Sender: FDA-Public Use
  Company Number: IT-ACCORD-235230

PATIENT
  Age: 85 Year
  Sex: Female

DRUGS (10)
  1. GLIPIZIDE. [Suspect]
     Active Substance: GLIPIZIDE
     Indication: TYPE 2 DIABETES MELLITUS
     Route: 048
     Dates: end: 20210706
  2. PANTOPRAZOLE [Concomitant]
     Active Substance: PANTOPRAZOLE
  3. CLARITHROMYCIN/CLARITHROMYCIN LACTOBIONATE [Interacting]
     Active Substance: CLARITHROMYCIN LACTOBIONATE
     Indication: HELICOBACTER INFECTION
     Dates: start: 20210702
  4. AMLODIPINE [Concomitant]
     Active Substance: AMLODIPINE BESYLATE
  5. AMOXICILLIN. [Concomitant]
     Active Substance: AMOXICILLIN
     Indication: HELICOBACTER INFECTION
     Route: 048
     Dates: start: 20210702
  6. SIMVASTATIN. [Concomitant]
     Active Substance: SIMVASTATIN
  7. TELMISARTAN. [Concomitant]
     Active Substance: TELMISARTAN
  8. RIVASTIGMINE/RIVASTIGMINE TARTRATE [Concomitant]
     Active Substance: RIVASTIGMINE
     Route: 062
  9. URSODEOXYCHOLATE SODIUM/URSODEOXYCHOLIC ACID [Concomitant]
     Active Substance: URSODIOL
  10. ACETYLSALICYLIC ACID [Concomitant]
     Active Substance: ASPIRIN

REACTIONS (3)
  - Drug interaction [Unknown]
  - Hypoglycaemia [Recovering/Resolving]
  - Fall [Unknown]

NARRATIVE: CASE EVENT DATE: 20210706
